FAERS Safety Report 10682320 (Version 2)
Quarter: 2015Q1

REPORT INFORMATION
  Report Type: Spontaneous
  Country: BR (occurrence: None)
  Receive Date: 20141224
  Receipt Date: 20150109
  Transmission Date: 20150720
  Serious: Yes (Other)
  Sender: FDA-Public Use
  Company Number: 2014FE03491

PATIENT
  Age: 74 Year
  Sex: Male

DRUGS (10)
  1. DDAVP [Suspect]
     Active Substance: DESMOPRESSIN ACETATE
     Indication: HAEMOSTASIS
     Dosage: INTRAVENOUS?
     Route: 042
  2. GLIBENCLAMIDE [Concomitant]
     Active Substance: GLYBURIDE
  3. NPH INSULIN (ISOPHANE INSULIN) [Concomitant]
  4. HYDROCHLOROTHIAZIDE. [Concomitant]
     Active Substance: HYDROCHLOROTHIAZIDE
  5. VALSARTAN. [Concomitant]
     Active Substance: VALSARTAN
  6. ASPIRINA (ACETYLSALCYLIC ACID) [Concomitant]
  7. CLOPIDOGREL [Concomitant]
     Active Substance: CLOPIDOGREL BISULFATE
  8. AMLODIPINE [Concomitant]
     Active Substance: AMLODIPINE BESYLATE
  9. METFORMIN [Concomitant]
     Active Substance: METFORMIN HYDROCHLORIDE
  10. SIMVASTATIN. [Concomitant]
     Active Substance: SIMVASTATIN

REACTIONS (4)
  - Haemodynamic instability [None]
  - Chronic kidney disease [None]
  - Haemodialysis [None]
  - Sensory disturbance [None]
